FAERS Safety Report 8235380-2 (Version None)
Quarter: 2012Q1

REPORT INFORMATION
  Report Type: 
  Country: None (occurrence: None)
  Receive Date: 20120326
  Receipt Date: 20120319
  Transmission Date: 20120608
  Serious: Yes (Hospitalization, Other)
  Sender: FDA-Public Use
  Company Number: US-PFIZER INC-2012039622

PATIENT
  Sex: Female
  Weight: 65.76 kg

DRUGS (8)
  1. OMEPRAZOLE [Concomitant]
     Indication: GASTROOESOPHAGEAL REFLUX DISEASE
     Dosage: 20 MG, 1X/DAY
     Route: 048
  2. CYANOCOBALAMIN [Concomitant]
  3. BISOPROLOL FUMARATE AND HYDROCHLOROTHIAZIDE [Concomitant]
     Indication: HYPERTENSION
     Dosage: 5/6.25 MG, DAILY
  4. PNEUMOVAX 23 [Concomitant]
     Dosage: UNK
     Route: 030
     Dates: start: 20120120, end: 20120120
  5. LIPITOR [Suspect]
     Indication: BLOOD CHOLESTEROL ABNORMAL
     Dosage: 80 MG, HALF DAILY
     Route: 048
  6. LIPITOR [Suspect]
     Dosage: 80 MG, 1X/DAY
     Route: 048
  7. LOPID [Suspect]
     Indication: BLOOD TRIGLYCERIDES ABNORMAL
     Dosage: 600 MG, 2X/DAY
     Route: 048
     Dates: start: 20110101, end: 20110101
  8. MULTIPLE VITAMINS [Concomitant]

REACTIONS (7)
  - POOR QUALITY SLEEP [None]
  - HYPERTRICHOSIS [None]
  - BLOOD TRIGLYCERIDES INCREASED [None]
  - CEREBROVASCULAR ACCIDENT [None]
  - TRANSIENT ISCHAEMIC ATTACK [None]
  - HYPOAESTHESIA [None]
  - DRY MOUTH [None]
